FAERS Safety Report 23955622 (Version 3)
Quarter: 2024Q3

REPORT INFORMATION
  Report Type: Report from Study
  Country: IN (occurrence: IN)
  Receive Date: 20240610
  Receipt Date: 20240710
  Transmission Date: 20241017
  Serious: No
  Sender: ROCHE
  Company Number: IN-ROCHE-3384051

PATIENT
  Age: 60 Year
  Sex: Female

DRUGS (3)
  1. PHESGO [Suspect]
     Active Substance: HYALURONIDASE-ZZXF\PERTUZUMAB\TRASTUZUMAB
     Indication: Breast cancer metastatic
     Dosage: ONGOING YES, INTERVAL 18 DAYS
     Route: 058
     Dates: start: 20230413
  2. PHESGO [Suspect]
     Active Substance: HYALURONIDASE-ZZXF\PERTUZUMAB\TRASTUZUMAB
     Route: 058
  3. PHESGO [Suspect]
     Active Substance: HYALURONIDASE-ZZXF\PERTUZUMAB\TRASTUZUMAB
     Route: 058

REACTIONS (2)
  - Off label use [Unknown]
  - No adverse event [Unknown]
